FAERS Safety Report 6676536-X (Version None)
Quarter: 2010Q2

REPORT INFORMATION
  Report Type: 
  Country: None (occurrence: None)
  Receive Date: 20100412
  Receipt Date: 20100401
  Transmission Date: 20101027
  Serious: Yes (Other)
  Sender: FDA-Public Use
  Company Number: CH-NOVOPROD-306648

PATIENT
  Age: 31 Year
  Sex: Female

DRUGS (12)
  1. NOVONORM [Suspect]
     Indication: DRUG USE FOR UNKNOWN INDICATION
     Dosage: AS NECESSARY / TRANSPLACENTAL
  2. MINERVA                            /00541901/ [Concomitant]
     Dosage: 1 DOSAGE FORM / TRANSPLACENTAL
     Dates: end: 20100301
  3. LEXOTANIL [Concomitant]
     Dosage: AS NECESSARY / TRANSPLACENTAL
  4. TRYPTIZOL                          /00002202/ [Concomitant]
     Dosage: AS NECESSARY / TRANSPLACENTAL
  5. CORGARD [Concomitant]
     Dosage: AS NECESSARY / TRANSPLACENTAL
  6. RIMACTAN                           /00146901/ [Concomitant]
     Dosage: AS NECESSARY / TRANSPLACENTAL
  7. BACTRIM [Concomitant]
     Dosage: AS NECESSARY / TRANSPLACENTAL
  8. RELPAX [Concomitant]
     Dosage: AS NECESSARY / TRANSPLACENTAL
  9. TOPAMAX [Concomitant]
     Dosage: AS NECESSARY / TRANSPLACENTAL
  10. ZOLDORM [Concomitant]
     Dosage: AS NECESSARY / TRANSPLACENTAL
  11. METFIN [Concomitant]
     Dosage: AS NECESSARY / TRANSPLACENTAL
  12. XENICAL [Concomitant]
     Dosage: AS NECESSARY / TRANSPLACENTAL

REACTIONS (1)
  - PREGNANCY [None]
